FAERS Safety Report 23225032 (Version 4)
Quarter: 2025Q1

REPORT INFORMATION
  Report Type: Spontaneous
  Country: US (occurrence: US)
  Receive Date: 20231124
  Receipt Date: 20250220
  Transmission Date: 20250409
  Serious: Yes (Other)
  Sender: SANOFI AVENTIS
  Company Number: US-SA-SAC20231122000077

PATIENT
  Age: 50 Year
  Sex: Male

DRUGS (53)
  1. DUPIXENT [Suspect]
     Active Substance: DUPILUMAB
     Indication: Asthma
     Dosage: 300 MG, QOW
     Route: 058
     Dates: start: 20230607
  2. ALBUTEROL [Concomitant]
     Active Substance: ALBUTEROL
  3. AZITHROMYCIN [Concomitant]
     Active Substance: AZITHROMYCIN
  4. AZITHROMYCIN [Concomitant]
     Active Substance: AZITHROMYCIN
  5. FISH OIL [Concomitant]
     Active Substance: FISH OIL
  6. NORVASC [Concomitant]
     Active Substance: AMLODIPINE BESYLATE
  7. OZEMPIC [Concomitant]
     Active Substance: SEMAGLUTIDE
  8. SPIRIVA [Concomitant]
     Active Substance: TIOTROPIUM BROMIDE MONOHYDRATE
  9. SYMBICORT [Concomitant]
     Active Substance: BUDESONIDE\FORMOTEROL FUMARATE DIHYDRATE
  10. SYMBICORT [Concomitant]
     Active Substance: BUDESONIDE\FORMOTEROL FUMARATE DIHYDRATE
  11. SYMBICORT [Concomitant]
     Active Substance: BUDESONIDE\FORMOTEROL FUMARATE DIHYDRATE
  12. VITAMIN D3 [Concomitant]
     Active Substance: CHOLECALCIFEROL
  13. VITAMIN D3 [Concomitant]
     Active Substance: CHOLECALCIFEROL
  14. RED YEAST PLUS [Concomitant]
  15. HERBALS\TURMERIC [Concomitant]
     Active Substance: HERBALS\TURMERIC
  16. HERBALS\TURMERIC [Concomitant]
     Active Substance: HERBALS\TURMERIC
  17. PREDNISONE [Concomitant]
     Active Substance: PREDNISONE
     Indication: Asthma
  18. PREDNISONE [Concomitant]
     Active Substance: PREDNISONE
  19. CORTICOSTEROID NOS [Concomitant]
     Active Substance: CORTICOSTEROID NOS
     Route: 048
  20. ADVAIR HFA [Concomitant]
     Active Substance: FLUTICASONE PROPIONATE\SALMETEROL XINAFOATE
  21. ALBUTEROL SULFATE [Concomitant]
     Active Substance: ALBUTEROL SULFATE
     Indication: Asthma
  22. ALLOPURINOL [Concomitant]
     Active Substance: ALLOPURINOL
  23. AMLODIPINE [Concomitant]
     Active Substance: AMLODIPINE BESYLATE
  24. ACETAMINOPHEN\CODEINE PHOSPHATE [Concomitant]
     Active Substance: ACETAMINOPHEN\CODEINE PHOSPHATE
  25. AZELASTINE [Concomitant]
     Active Substance: AZELASTINE
  26. CETIRIZINE [Concomitant]
     Active Substance: CETIRIZINE HYDROCHLORIDE
  27. COLCHICINE [Concomitant]
     Active Substance: COLCHICINE
  28. FLUTICASONE [Concomitant]
     Active Substance: FLUTICASONE
  29. ONDANSETRON [Concomitant]
     Active Substance: ONDANSETRON
     Route: 048
  30. PANTOPRAZOLE [Concomitant]
     Active Substance: PANTOPRAZOLE
  31. TAMSULOSIN [Concomitant]
     Active Substance: TAMSULOSIN
  32. VITAMIN D NOS [Concomitant]
     Active Substance: CHOLECALCIFEROL\ERGOCALCIFEROL
  33. DIETARY SUPPLEMENT [Concomitant]
     Active Substance: DIETARY SUPPLEMENT
  34. ADVAIR HFA [Concomitant]
     Active Substance: FLUTICASONE PROPIONATE\SALMETEROL XINAFOATE
  35. ALBUTEROL [Concomitant]
     Active Substance: ALBUTEROL
  36. DEPO-MEDROL [Concomitant]
     Active Substance: METHYLPREDNISOLONE ACETATE
  37. SPIRIVA [Concomitant]
     Active Substance: TIOTROPIUM BROMIDE MONOHYDRATE
  38. LEVOCETIRIZINE [Concomitant]
     Active Substance: LEVOCETIRIZINE
  39. VITAMIN D [Concomitant]
     Active Substance: VITAMIN D NOS
  40. NAPROXEN [Concomitant]
     Active Substance: NAPROXEN
  41. INDOMETHACIN [Concomitant]
     Active Substance: INDOMETHACIN
  42. KETOROLAC [Concomitant]
     Active Substance: KETOROLAC TROMETHAMINE
  43. CHLORHEXIDINE [Concomitant]
     Active Substance: CHLORHEXIDINE
  44. TIZANIDINE [Concomitant]
     Active Substance: TIZANIDINE
  45. FLUTICASONE [Concomitant]
     Active Substance: FLUTICASONE
  46. DEXAMETHASONE [Concomitant]
     Active Substance: DEXAMETHASONE
  47. METHOCARBAMOL [Concomitant]
     Active Substance: METHOCARBAMOL
  48. CODEINE GUAIFENESIN [Concomitant]
     Active Substance: CODEINE PHOSPHATE\GUAIFENESIN
  49. VITAMIN D3 K2 [Concomitant]
  50. HERBALS\TURMERIC [Concomitant]
     Active Substance: HERBALS\TURMERIC
  51. ONDANSETRON [Concomitant]
     Active Substance: ONDANSETRON
  52. OZEMPIC [Concomitant]
     Active Substance: SEMAGLUTIDE
  53. TRIAMCINOLONE ACETONIDE [Concomitant]
     Active Substance: TRIAMCINOLONE ACETONIDE

REACTIONS (5)
  - Nephrolithiasis [Not Recovered/Not Resolved]
  - Arthropathy [Unknown]
  - Impaired quality of life [Not Recovered/Not Resolved]
  - Asthma [Unknown]
  - Drug ineffective [Unknown]

NARRATIVE: CASE EVENT DATE: 20230101
